FAERS Safety Report 6529531-5 (Version None)
Quarter: 2010Q1

REPORT INFORMATION
  Report Type: 
  Country: None (occurrence: None)
  Receive Date: 20100107
  Receipt Date: 20100104
  Transmission Date: 20100710
  Serious: Yes (Hospitalization)
  Sender: FDA-Public Use
  Company Number: US-ASTRAZENECA-2010SE00373

PATIENT
  Age: 71 Year
  Sex: Female
  Weight: 81.6 kg

DRUGS (2)
  1. CRESTOR [Suspect]
     Indication: BLOOD CHOLESTEROL INCREASED
     Route: 048
  2. REGLAN [Suspect]
     Indication: NAUSEA
     Dates: start: 20090703, end: 20090703

REACTIONS (6)
  - BLOOD PRESSURE ABNORMAL [None]
  - FACIAL PALSY [None]
  - MALAISE [None]
  - ROAD TRAFFIC ACCIDENT [None]
  - THROAT TIGHTNESS [None]
  - TONIC CLONIC MOVEMENTS [None]
